FAERS Safety Report 5775026-6 (Version None)
Quarter: 2008Q2

REPORT INFORMATION
  Report Type: 
  Country: None (occurrence: None)
  Receive Date: 20080617
  Receipt Date: 20080617
  Transmission Date: 20081010
  Serious: Yes (Life-Threatening)
  Sender: FDA-Public Use
  Company Number: None

PATIENT
  Sex: Female
  Weight: 90 kg

DRUGS (7)
  1. HEPARIN [Suspect]
     Indication: PULMONARY EMBOLISM
     Dosage: 7200 UNIT LOAD IV; 1600 U/HR HOURLY IV
     Route: 042
     Dates: start: 20080228, end: 20080301
  2. PERCOCET [Concomitant]
  3. DOCUSATE [Concomitant]
  4. IBUROFEN [Concomitant]
  5. SIMETHICONE [Concomitant]
  6. CEFAZOLIN [Concomitant]
  7. HYDROMORPHONE HCL [Concomitant]

REACTIONS (3)
  - ACTIVATED PARTIAL THROMBOPLASTIN TIME PROLONGED [None]
  - HAEMOGLOBIN DECREASED [None]
  - PERITONEAL HAEMORRHAGE [None]
